FAERS Safety Report 9235536 (Version 4)
Quarter: 2014Q2

REPORT INFORMATION
  Report Type: Spontaneous
  Country: US (occurrence: None)
  Receive Date: 20121031
  Receipt Date: 20130724
  Transmission Date: 20141212
  Serious: No
  Sender: FDA-Public Use
  Company Number: PHEH2012US016798

PATIENT
  Age: 46 Year
  Sex: Female
  Weight: 102 kg

DRUGS (1)
  1. GILENYA [Suspect]
     Indication: MULTIPLE SCLEROSIS
     Route: 048
     Dates: start: 20120813

REACTIONS (14)
  - Joint injury [None]
  - Arthritis [None]
  - Hypoaesthesia oral [None]
  - Muscular weakness [None]
  - Dizziness [None]
  - Condition aggravated [None]
  - Diarrhoea [None]
  - Sinusitis [None]
  - Multiple sclerosis relapse [None]
  - Sinus disorder [None]
  - Sinus congestion [None]
  - Musculoskeletal stiffness [None]
  - Hypersensitivity [None]
  - Hypoaesthesia [None]
